FAERS Safety Report 25487637 (Version 1)
Quarter: 2025Q2

REPORT INFORMATION
  Report Type: Spontaneous
  Country: JP (occurrence: JP)
  Receive Date: 20250627
  Receipt Date: 20250627
  Transmission Date: 20250716
  Serious: Yes (Other)
  Sender: JOHNSON AND JOHNSON
  Company Number: JP-JNJFOC-20250634536

PATIENT
  Age: 9 Decade
  Sex: Male

DRUGS (2)
  1. STELARA [Suspect]
     Active Substance: USTEKINUMAB
     Indication: Colitis ulcerative
     Route: 065
  2. VEDOLIZUMAB(GENETICAL RECOMBINATION) [Concomitant]
     Indication: Colitis ulcerative
     Route: 065

REACTIONS (1)
  - Diffuse large B-cell lymphoma [Unknown]
